FAERS Safety Report 6196497-X (Version None)
Quarter: 2009Q2

REPORT INFORMATION
  Report Type: 
  Country: None (occurrence: None)
  Receive Date: 20090520
  Receipt Date: 20090512
  Transmission Date: 20091009
  Serious: Yes (Other)
  Sender: FDA-Public Use
  Company Number: US-JNJFOC-20090503064

PATIENT
  Age: 7 Year
  Sex: Female
  Weight: 23.59 kg

DRUGS (1)
  1. INFANTS MYLICON NON-STAINING FORMULA [Suspect]
     Indication: FLATULENCE
     Route: 048

REACTIONS (1)
  - HYPERSENSITIVITY [None]
